FAERS Safety Report 4376752-6 (Version None)
Quarter: 2004Q2

REPORT INFORMATION
  Report Type: 
  Country: None (occurrence: None)
  Receive Date: 20040609
  Receipt Date: 20040330
  Transmission Date: 20050107
  Serious: Yes (Hospitalization)
  Sender: FDA-Public Use
  Company Number: 2004203063US

PATIENT
  Age: 57 Year
  Sex: Male

DRUGS (3)
  1. BEXTRA [Suspect]
     Indication: BACK PAIN
     Dosage: 10 MG, QD
     Dates: start: 20030417, end: 20030420
  2. BEXTRA [Suspect]
     Indication: BACK PAIN
     Dosage: 10 MG, QD
     Dates: start: 20040215, end: 20040217
  3. ADVAIR DISKUS 100/50 [Concomitant]

REACTIONS (1)
  - THROMBOSIS [None]
